FAERS Safety Report 15526160 (Version 2)
Quarter: 2018Q4

REPORT INFORMATION
  Report Type: Spontaneous
  Country: FR (occurrence: FR)
  Receive Date: 20181018
  Receipt Date: 20181226
  Transmission Date: 20190205
  Serious: Yes (Other)
  Sender: FDA-Public Use
  Company Number: FR-MYLANLABS-2018M1077925

PATIENT
  Sex: Female

DRUGS (3)
  1. ACETYLSALICYLIC ACID [Suspect]
     Active Substance: ASPIRIN
     Indication: STILL^S DISEASE
     Dosage: UNK, LOW DOSE ASPIRIN
  2. IMMUNOGLOBULIN                     /00025201/ [Suspect]
     Active Substance: HUMAN IMMUNOGLOBULIN G
     Indication: STILL^S DISEASE
     Dosage: UNK,AT 26 AND 31 WG
     Route: 042
  3. PREDNISONE. [Suspect]
     Active Substance: PREDNISONE
     Indication: STILL^S DISEASE
     Dosage: 10 MILLIGRAM, QD (DAILY DOSE 10 MG)

REACTIONS (5)
  - Off label use [Unknown]
  - Product use issue [Unknown]
  - Premature delivery [Recovered/Resolved]
  - Maternal exposure during pregnancy [Recovered/Resolved]
  - Pre-eclampsia [Unknown]
